FAERS Safety Report 10151929 (Version 1)
Quarter: 2014Q2

REPORT INFORMATION
  Report Type: Spontaneous
  Country: US (occurrence: None)
  Receive Date: 20140501
  Receipt Date: 20140501
  Transmission Date: 20141212
  Serious: Yes (Other)
  Sender: FDA-Public Use
  Company Number: ADR-2014-00719

PATIENT
  Age: 58 Year
  Sex: Female

DRUGS (1)
  1. BACLOFEN [Suspect]

REACTIONS (9)
  - Paraesthesia [None]
  - Musculoskeletal pain [None]
  - Fall [None]
  - Sensory disturbance [None]
  - Loss of proprioception [None]
  - Joint range of motion decreased [None]
  - Muscle spasticity [None]
  - Hyporeflexia [None]
  - Device dislocation [None]
